FAERS Safety Report 9064510 (Version 2)
Quarter: 2013Q1

REPORT INFORMATION
  Report Type: Report from Study
  Country: JP (occurrence: JP)
  Receive Date: 20130214
  Receipt Date: 20130226
  Transmission Date: 20140127
  Serious: Yes (Other)
  Sender: FDA-Public Use
  Company Number: JP-OTSUKA-JP-2013-10318

PATIENT
  Age: 85 None
  Sex: Female
  Weight: 38 kg

DRUGS (23)
  1. SAMSCA [Suspect]
     Indication: FLUID RETENTION
     Dosage: 7.5 MG MILLIGRAM(S), QAM
     Route: 048
     Dates: start: 20130118, end: 20130122
  2. LASIX [Suspect]
     Indication: CARDIAC FAILURE
     Dosage: 40 MG MILLIGRAM(S), DAILY DOSE
     Route: 042
     Dates: start: 20130111, end: 20130111
  3. LASIX [Suspect]
     Dosage: 80 MG MILLIGRAM(S), DAILY DOSE
     Route: 042
     Dates: start: 20130112, end: 20130112
  4. LASIX [Suspect]
     Dosage: 40 MG MILLIGRAM(S), DAILY DOSE
     Route: 042
     Dates: start: 20130113, end: 20130116
  5. LASIX [Suspect]
     Dosage: 60 MG MILLIGRAM(S), DAILY DOSE
     Route: 042
     Dates: start: 20130117, end: 20130117
  6. LASIX [Suspect]
     Dosage: 20 MG MILLIGRAM(S), DAILY DOSE
     Route: 042
     Dates: start: 20130118, end: 20130119
  7. LASIX [Suspect]
     Dosage: 5 MG MILLIGRAM(S), DAILY DOSE
     Route: 042
     Dates: start: 20130120, end: 20130120
  8. LASIX [Suspect]
     Indication: CARDIAC FAILURE
     Dosage: 40 MG MILLIGRAM(S), DAILY DOSE
     Route: 048
  9. ACECOL [Suspect]
     Dosage: 1 MG MILLIGRAM(S), DAILY DOSE
     Route: 048
  10. ALDACTONE A [Suspect]
     Indication: CARDIAC FAILURE
     Dosage: 25 MG MILLIGRAM(S), DAILY DOSE
     Route: 048
  11. VASOLAN [Suspect]
     Indication: CARDIAC FAILURE
     Dosage: 120 MG MILLIGRAM(S), DAILY DOSE
     Route: 048
  12. CARPERITIDE [Concomitant]
     Indication: CARDIAC FAILURE
     Dosage: 2000 MCG, DAILY DOSE
     Route: 042
     Dates: start: 20130111, end: 20130111
  13. NOVO HEPARIN [Concomitant]
     Indication: CARDIAC FAILURE
     Dosage: 5 KIU IU(1000S), DAILY DOSE
     Route: 042
     Dates: start: 20130111, end: 20130121
  14. NAUZELIN [Concomitant]
     Dosage: 30 MG MILLIGRAM(S), DAILY DOSE
     Route: 048
     Dates: end: 20130118
  15. LAC-B [Concomitant]
     Dosage: 3 G GRAM(S), DAILY DOSE
     Route: 048
     Dates: end: 20130118
  16. RIZE [Concomitant]
     Dosage: 15 MG MILLIGRAM(S), DAILY DOSE
     Route: 048
  17. WARFARIN [Concomitant]
     Indication: CARDIAC FAILURE
     Dosage: 2 MG MILLIGRAM(S), DAILY DOSE
     Route: 048
  18. THEODUR [Concomitant]
     Dosage: 200 MG MILLIGRAM(S), DAILY DOSE
     Route: 048
  19. MYONAL [Concomitant]
     Dosage: 150 MG MILLIGRAM(S), DAILY DOSE
     Route: 048
  20. ADJUST-A [Concomitant]
     Dosage: 80 MG MILLIGRAM(S), DAILY DOSE
     Route: 048
  21. KLARICID [Concomitant]
     Dosage: 400 MG MILLIGRAM(S), DAILY DOSE
     Route: 048
  22. NEUROTROPIN [Concomitant]
     Dosage: 4 DF DOSAGE FORM, DAILY DOSE
     Route: 048
  23. INOVAN [Concomitant]
     Indication: CARDIAC FAILURE
     Dosage: 150 MG MILLIGRAM(S), DAILY DOSE
     Route: 042
     Dates: start: 20130118, end: 20130121

REACTIONS (1)
  - Blood pressure decreased [Recovered/Resolved]
